FAERS Safety Report 11512969 (Version 2)
Quarter: 2015Q3

REPORT INFORMATION
  Report Type: Spontaneous
  Country: US (occurrence: US)
  Receive Date: 20150903
  Receipt Date: 20150903
  Transmission Date: 20151125
  Serious: No
  Sender: FDA-Public Use
  Company Number: US-ELI_LILLY_AND_COMPANY-US200910000224

PATIENT
  Age: 92 Year
  Sex: Female

DRUGS (4)
  1. HUMALOG MIX50/50 [Suspect]
     Active Substance: INSULIN LISPRO
     Dosage: 10 U, OTHER
     Dates: start: 1998
  2. HUMALOG MIX50/50 [Suspect]
     Active Substance: INSULIN LISPRO
  3. HUMALOG MIX50/50 [Suspect]
     Active Substance: INSULIN LISPRO
     Dosage: 10 U, OTHER
     Dates: start: 1998
  4. HUMALOG MIX50/50 [Suspect]
     Active Substance: INSULIN LISPRO
     Indication: DIABETES MELLITUS
     Dosage: 15 U, OTHER
     Dates: start: 1998

REACTIONS (3)
  - Hypoacusis [Not Recovered/Not Resolved]
  - Nervousness [Unknown]
  - Intercepted product selection error [Unknown]

NARRATIVE: CASE EVENT DATE: 20090921
